FAERS Safety Report 4277147-6 (Version None)
Quarter: 2004Q1

REPORT INFORMATION
  Report Type: 
  Country: None (occurrence: None)
  Receive Date: 20040120
  Receipt Date: 20040105
  Transmission Date: 20041129
  Serious: Yes (Other)
  Sender: FDA-Public Use
  Company Number: HQWYE061406JAN04

PATIENT
  Age: 21 Year
  Sex: Female

DRUGS (1)
  1. PROPRANOLOL HCL [Suspect]
     Indication: MIGRAINE
     Dosage: 40 MG 1 X PER 1 DAY, ORAL
     Route: 048
     Dates: start: 20031020, end: 20031031

REACTIONS (2)
  - DYSPNOEA [None]
  - PALPITATIONS [None]
